FAERS Safety Report 5527185-8 (Version None)
Quarter: 2007Q4

REPORT INFORMATION
  Report Type: 
  Country: None (occurrence: None)
  Receive Date: 20071121
  Receipt Date: 20071106
  Transmission Date: 20080405
  Serious: Yes (Other)
  Sender: FDA-Public Use
  Company Number: 2007US001499

PATIENT
  Age: 67 Year
  Sex: Female
  Weight: 95.2 kg

DRUGS (10)
  1. AMEVIVE [Suspect]
     Indication: PSORIASIS
     Dosage: 15 MG, WEEKLY, INTRAMUSCULAR
     Route: 030
     Dates: start: 20030513
  2. ACTOS [Concomitant]
  3. TOPROL-XL [Concomitant]
  4. ETODOLAC [Concomitant]
  5. VITAMIN D [Concomitant]
  6. REGLAN [Concomitant]
  7. NIFEDIPINE [Concomitant]
  8. ASPIRIN [Concomitant]
  9. LISINOPRIL [Concomitant]
  10. METOCLOPRAMIDE              (METOCLOPRAMIDE) [Concomitant]

REACTIONS (1)
  - HUMERUS FRACTURE [None]
